FAERS Safety Report 4584448-0 (Version None)
Quarter: 2005Q1

REPORT INFORMATION
  Report Type: 
  Country: None (occurrence: None)
  Receive Date: 20050125
  Receipt Date: 20041110
  Transmission Date: 20050727
  Serious: No
  Sender: FDA-Public Use
  Company Number: USA041183716

PATIENT
  Age: 74 Year
  Sex: Female

DRUGS (4)
  1. FORTEO [Suspect]
     Indication: OSTEOPOROSIS
  2. FOSAMAX [Concomitant]
  3. PLAVIX [Concomitant]
  4. OSCAL (CALCIUM CARBONATE) [Concomitant]

REACTIONS (4)
  - INJECTION SITE ERYTHEMA [None]
  - MUSCULAR WEAKNESS [None]
  - TINEA INFECTION [None]
  - URINE CALCIUM INCREASED [None]
